FAERS Safety Report 13238641 (Version 1)
Quarter: 2017Q1

REPORT INFORMATION
  Report Type: Spontaneous
  Country: US (occurrence: US)
  Receive Date: 20170216
  Receipt Date: 20170216
  Transmission Date: 20170428
  Serious: Yes (Other)
  Sender: FDA-Public Use
  Company Number: US-CIPLA LTD.-2016US21997

PATIENT

DRUGS (6)
  1. LYRICA [Suspect]
     Active Substance: PREGABALIN
     Indication: PANIC ATTACK
     Dosage: 300 MG, ONE IN THE MORNING AND ONE AT NIGHT
     Route: 065
     Dates: start: 201609
  2. ALPRAZOLAM. [Concomitant]
     Active Substance: ALPRAZOLAM
     Indication: PANIC ATTACK
     Dosage: UNK
     Route: 065
  3. GABAPENTIN. [Suspect]
     Active Substance: GABAPENTIN
     Indication: PANIC ATTACK
     Dosage: 300 MG, ONE IN MORNING AND ONE AT NOON ONE AT BEDTIME
     Route: 048
     Dates: start: 201609
  4. GABAPENTIN. [Suspect]
     Active Substance: GABAPENTIN
     Indication: DIABETIC NEUROPATHY
  5. LYRICA [Suspect]
     Active Substance: PREGABALIN
     Indication: DIABETIC NEUROPATHY
  6. LORAZEPAM. [Concomitant]
     Active Substance: LORAZEPAM
     Indication: PANIC ATTACK
     Dosage: 1 MG, STARTED LAST MONTH, SOMETIMES TAKE ONE OR TWO
     Route: 065

REACTIONS (4)
  - Body temperature fluctuation [Not Recovered/Not Resolved]
  - Suicidal ideation [Unknown]
  - Dyspnoea [Not Recovered/Not Resolved]
  - Drug ineffective for unapproved indication [Unknown]
